FAERS Safety Report 4824177-9 (Version None)
Quarter: 2005Q4

REPORT INFORMATION
  Report Type: 
  Country: None (occurrence: None)
  Receive Date: 20051109
  Receipt Date: 20051031
  Transmission Date: 20060501
  Serious: Yes (Other)
  Sender: FDA-Public Use
  Company Number: NZ-ABBOTT-05P-118-0316138-00

PATIENT
  Sex: Female

DRUGS (4)
  1. VALPROATE SODIUM [Suspect]
     Indication: DRUG USE FOR UNKNOWN INDICATION
  2. RISPERIDONE [Suspect]
     Indication: DRUG USE FOR UNKNOWN INDICATION
     Route: 048
     Dates: start: 20050601
  3. RISPERIDONE [Suspect]
     Route: 048
     Dates: start: 20051001
  4. FLUOXETINE [Concomitant]
     Indication: DRUG USE FOR UNKNOWN INDICATION

REACTIONS (2)
  - NEUTROPHIL COUNT DECREASED [None]
  - SEDATION [None]
